FAERS Safety Report 24345436 (Version 1)
Quarter: 2024Q3

REPORT INFORMATION
  Report Type: Spontaneous
  Country: US (occurrence: None)
  Receive Date: 20240920
  Receipt Date: 20240920
  Transmission Date: 20241017
  Serious: Yes (Hospitalization)
  Sender: Public
  Company Number: None

PATIENT
  Age: 61 Year
  Sex: Female
  Weight: 65.8 kg

DRUGS (1)
  1. SEMAGLUTIDE [Suspect]
     Active Substance: SEMAGLUTIDE
     Indication: Weight decreased
     Route: 058
     Dates: start: 20240417, end: 20240717

REACTIONS (5)
  - Colitis [None]
  - Migraine [None]
  - Pyrexia [None]
  - Crohn^s disease [None]
  - Product dose omission in error [None]

NARRATIVE: CASE EVENT DATE: 20240821
